FAERS Safety Report 18553256 (Version 2)
Quarter: 2021Q4

REPORT INFORMATION
  Report Type: Spontaneous
  Country: US (occurrence: US)
  Receive Date: 20201127
  Receipt Date: 20211221
  Transmission Date: 20220304
  Serious: No
  Sender: FDA-Public Use
  Company Number: US-ELI_LILLY_AND_COMPANY-US202011007283

PATIENT
  Age: 64 Year
  Sex: Female

DRUGS (3)
  1. BASAGLAR [Suspect]
     Active Substance: INSULIN GLARGINE
     Indication: Type 1 diabetes mellitus
     Dosage: 7 U, BID
     Route: 058
  2. BASAGLAR [Suspect]
     Active Substance: INSULIN GLARGINE
     Dosage: 8 U, EACH MORNING
     Route: 058
     Dates: start: 2016
  3. BASAGLAR [Suspect]
     Active Substance: INSULIN GLARGINE
     Dosage: 5-6 U, EACH EVENING
     Route: 058
     Dates: start: 2016

REACTIONS (5)
  - Blood glucose increased [Recovering/Resolving]
  - Accidental underdose [Unknown]
  - Accidental underdose [Unknown]
  - Blood glucose increased [Unknown]
  - Visual impairment [Not Recovered/Not Resolved]

NARRATIVE: CASE EVENT DATE: 20211124
